FAERS Safety Report 23040494 (Version 2)
Quarter: 2023Q4

REPORT INFORMATION
  Report Type: Other
  Country: US (occurrence: US)
  Receive Date: 20231006
  Receipt Date: 20231006
  Transmission Date: 20240110
  Serious: No
  Sender: FDA-Public Use
  Company Number: US-TRAVERE-2023TVT00200

PATIENT
  Age: 7 Year
  Sex: Male

DRUGS (1)
  1. CHOLBAM [Suspect]
     Active Substance: CHOLIC ACID
     Indication: Smith-Lemli-Opitz syndrome
     Route: 048
     Dates: start: 20230526

REACTIONS (4)
  - Vomiting [Unknown]
  - Diarrhoea [Unknown]
  - Hepatic enzyme increased [Unknown]
  - Illness [Unknown]

NARRATIVE: CASE EVENT DATE: 20230531
